FAERS Safety Report 18418713 (Version 1)
Quarter: 2020Q4

REPORT INFORMATION
  Report Type: Report from Study
  Country: US (occurrence: US)
  Receive Date: 20201023
  Receipt Date: 20201023
  Transmission Date: 20210114
  Serious: No
  Sender: FDA-Public Use
  Company Number: NVSC2020US278010

PATIENT
  Sex: Female

DRUGS (1)
  1. MAYZENT [Suspect]
     Active Substance: SIPONIMOD
     Indication: SECONDARY PROGRESSIVE MULTIPLE SCLEROSIS
     Dosage: 2 MG, QD
     Route: 048

REACTIONS (8)
  - Eye pain [Unknown]
  - Pain [Unknown]
  - Breast pain [Unknown]
  - Dizziness [Unknown]
  - Pain in extremity [Unknown]
  - Influenza like illness [Unknown]
  - Spinal pain [Unknown]
  - Headache [Unknown]
